FAERS Safety Report 11068315 (Version 1)
Quarter: 2015Q2

REPORT INFORMATION
  Report Type: Spontaneous
  Country: US (occurrence: None)
  Receive Date: 20150424
  Receipt Date: 20150424
  Transmission Date: 20150821
  Serious: No
  Sender: FDA-Public Use
  Company Number: None

PATIENT
  Age: 86 Year
  Sex: Female

DRUGS (1)
  1. GATTEX [Suspect]
     Active Substance: TEDUGLUTIDE\WATER
     Dosage: 0.24 ML, DAILY, SUBCUTANEOUSLY
     Route: 058
     Dates: start: 20140707

REACTIONS (3)
  - Condition aggravated [None]
  - Fatigue [None]
  - Fall [None]
